FAERS Safety Report 9702192 (Version 1)
Quarter: 2013Q4

REPORT INFORMATION
  Report Type: Spontaneous
  Country: FR (occurrence: FR)
  Receive Date: 20131121
  Receipt Date: 20131121
  Transmission Date: 20140711
  Serious: Yes (Hospitalization)
  Sender: FDA-Public Use
  Company Number: FR-GE HEALTHCARE MEDICAL DIAGNOSTICS-OMPQ-PR-1311S-1321

PATIENT
  Age: 75 Year
  Sex: Male

DRUGS (6)
  1. OMNIPAQUE [Suspect]
     Indication: PRODUCT USED FOR UNKNOWN INDICATION
     Route: 013
     Dates: start: 20120814, end: 20120814
  2. OMNIPAQUE [Suspect]
     Indication: DIAGNOSTIC PROCEDURE
  3. GENTAMICIN [Suspect]
     Indication: STAPHYLOCOCCAL SEPSIS
     Dates: start: 20120818
  4. GENTAMICIN [Suspect]
     Dates: start: 20120819
  5. GENTAMICIN [Suspect]
     Dates: start: 20120821
  6. GENTAMICIN [Suspect]
     Dates: start: 20120824

REACTIONS (1)
  - Renal failure acute [Recovering/Resolving]
